FAERS Safety Report 7898179-2 (Version None)
Quarter: 2011Q4

REPORT INFORMATION
  Report Type: 
  Country: None (occurrence: None)
  Receive Date: 20111103
  Receipt Date: 20111018
  Transmission Date: 20120403
  Serious: Yes (Other)
  Sender: FDA-Public Use
  Company Number: 2011P1009577

PATIENT
  Age: 24 Year
  Sex: Female

DRUGS (3)
  1. CEFTRIAXONE [Suspect]
     Dosage: 1 GM;X4;IV
     Route: 042
  2. PIROXICAM [Concomitant]
  3. RANITIDINE [Concomitant]

REACTIONS (2)
  - HEPATITIS CHOLESTATIC [None]
  - HEPATOTOXICITY [None]
